FAERS Safety Report 13189479 (Version 1)
Quarter: 2017Q1

REPORT INFORMATION
  Report Type: Spontaneous
  Country: US (occurrence: US)
  Receive Date: 20170206
  Receipt Date: 20170206
  Transmission Date: 20170428
  Serious: Yes (Other)
  Sender: FDA-Public Use
  Company Number: US-PFIZER INC-2017043792

PATIENT
  Age: 33 Year
  Sex: Female

DRUGS (1)
  1. CHANTIX [Suspect]
     Active Substance: VARENICLINE TARTRATE
     Dosage: UNK
     Dates: start: 2009

REACTIONS (10)
  - Brain injury [Unknown]
  - Disturbance in attention [Unknown]
  - Depressed mood [Unknown]
  - Memory impairment [Unknown]
  - Balance disorder [Unknown]
  - Autoimmune disorder [Unknown]
  - Muscle rigidity [Unknown]
  - Musculoskeletal stiffness [Unknown]
  - Feeling abnormal [Unknown]
  - Attention deficit/hyperactivity disorder [Unknown]
